FAERS Safety Report 24432258 (Version 7)
Quarter: 2025Q1

REPORT INFORMATION
  Report Type: Report from Study
  Country: US (occurrence: US)
  Receive Date: 20241014
  Receipt Date: 20250127
  Transmission Date: 20250409
  Serious: Yes (Other)
  Sender: TAKEDA
  Company Number: US-TAKEDA-2024TUS099086

PATIENT
  Age: 75 Year
  Sex: Female
  Weight: 124 kg

DRUGS (20)
  1. VEDOLIZUMAB [Suspect]
     Active Substance: VEDOLIZUMAB
     Indication: Colitis ulcerative
  2. VEDOLIZUMAB [Suspect]
     Active Substance: VEDOLIZUMAB
  3. LIALDA [Suspect]
     Active Substance: MESALAMINE
     Indication: Colitis ulcerative
     Dosage: 2.4 GRAM, QD
     Dates: start: 2020
  4. SINGULAIR [Concomitant]
     Active Substance: MONTELUKAST SODIUM
  5. CYCLOSPORINE [Concomitant]
     Active Substance: CYCLOSPORINE
  6. LATANOPROST [Concomitant]
     Active Substance: LATANOPROST
  7. IMODIUM [Concomitant]
     Active Substance: LOPERAMIDE HYDROCHLORIDE
     Indication: Muscle spasms
  8. TIMOLOL [Concomitant]
     Active Substance: TIMOLOL
  9. DICYCLOMINE [Concomitant]
     Active Substance: DICYCLOMINE HYDROCHLORIDE
     Indication: Abdominal pain
  10. WARFARIN [Concomitant]
     Active Substance: WARFARIN
  11. PREDNISONE [Concomitant]
     Active Substance: PREDNISONE
  12. VOLTAREN [Concomitant]
     Active Substance: DICLOFENAC SODIUM
  13. ALBUTEROL [Concomitant]
     Active Substance: ALBUTEROL
  14. FLONASE [Concomitant]
     Active Substance: FLUTICASONE PROPIONATE
  15. SOTALOL [Concomitant]
     Active Substance: SOTALOL
     Indication: Atrial fibrillation
  16. FUROSEMIDE [Concomitant]
     Active Substance: FUROSEMIDE
  17. CALCIUM [Concomitant]
     Active Substance: CALCIUM
  18. VITAMIN D [Concomitant]
     Active Substance: VITAMIN D NOS
  19. ACETAMINOPHEN [Concomitant]
     Active Substance: ACETAMINOPHEN
     Dosage: 3000 MILLIGRAM, QD
  20. ZYRTEC [Concomitant]
     Active Substance: CETIRIZINE HYDROCHLORIDE

REACTIONS (12)
  - Diverticulitis [Unknown]
  - Colitis ulcerative [Unknown]
  - Atrial fibrillation [Not Recovered/Not Resolved]
  - Clostridium difficile infection [Unknown]
  - Drug ineffective [Not Recovered/Not Resolved]
  - COVID-19 [Unknown]
  - Overweight [Unknown]
  - Abnormal loss of weight [Unknown]
  - Defaecation urgency [Not Recovered/Not Resolved]
  - Illness [Not Recovered/Not Resolved]
  - Abdominal pain [Not Recovered/Not Resolved]
  - Decreased appetite [Unknown]

NARRATIVE: CASE EVENT DATE: 20240301
